FAERS Safety Report 9890487 (Version 1)
Quarter: 2014Q1

REPORT INFORMATION
  Report Type: Spontaneous
  Country: US (occurrence: None)
  Receive Date: 20140211
  Receipt Date: 20140211
  Transmission Date: 20141002
  Serious: No
  Sender: FDA-Public Use
  Company Number: None

PATIENT
  Age: 68 Year
  Sex: Female
  Weight: 59.88 kg

DRUGS (5)
  1. HYDROXYCHLOROQUINE [Suspect]
     Indication: SJOGREN^S SYNDROME
     Route: 048
     Dates: start: 2009, end: 2014
  2. IBUPROFEN [Suspect]
  3. LOSARTAN [Concomitant]
  4. METOPROLOL SUCCINATE [Concomitant]
  5. RESTASIS [Concomitant]

REACTIONS (1)
  - Diplopia [None]
